FAERS Safety Report 10351788 (Version 1)
Quarter: 2014Q3

REPORT INFORMATION
  Report Type: Spontaneous
  Country: CH (occurrence: CH)
  Receive Date: 20140730
  Receipt Date: 20140730
  Transmission Date: 20150326
  Serious: Yes (Life-Threatening, Hospitalization)
  Sender: FDA-Public Use
  Company Number: CH-ELI_LILLY_AND_COMPANY-CH201407009556

PATIENT
  Age: 52 Year
  Sex: Female

DRUGS (7)
  1. FRAGMIN [Concomitant]
     Active Substance: DALTEPARIN SODIUM
     Indication: THROMBOSIS PROPHYLAXIS
     Dosage: 0.2 ML, UNKNOWN
     Route: 065
     Dates: start: 201312
  2. PIPERACILLIN AND TAZOBACTAM [Suspect]
     Active Substance: PIPERACILLIN SODIUM\TAZOBACTAM SODIUM
     Indication: PNEUMONIA
     Dosage: 1 DF, UNKNOWN
     Route: 065
     Dates: start: 20131208, end: 20131212
  3. ASPIRIN. [Suspect]
     Active Substance: ASPIRIN
     Indication: PLATELET AGGREGATION
     Dosage: 500 MG, UNKNOWN
     Route: 048
     Dates: start: 20131202, end: 201312
  4. HEPARIN [Suspect]
     Active Substance: HEPARIN SODIUM
     Indication: ANTICOAGULANT THERAPY
     Dosage: 1 DF, UNKNOWN
     Route: 065
     Dates: start: 20131202, end: 20131202
  5. TAMOXIFEN [Concomitant]
     Active Substance: TAMOXIFEN
     Indication: BREAST CANCER
     Dosage: 20 MG, QD
     Route: 065
  6. EFIENT [Suspect]
     Active Substance: PRASUGREL HYDROCHLORIDE
     Indication: ANTICOAGULANT THERAPY
     Dosage: 60 MG, UNKNOWN
     Route: 048
     Dates: start: 20131202, end: 20131202
  7. ASPIRIN. [Suspect]
     Active Substance: ASPIRIN
     Dosage: 100 MG, UNKNOWN (AFTER STABILIZATION OF CEREBRAL HEMORRHAGE)
     Route: 048
     Dates: start: 201312

REACTIONS (4)
  - Rash [Unknown]
  - Brain oedema [Unknown]
  - Cerebral haemorrhage [Recovering/Resolving]
  - Pneumonia [Unknown]

NARRATIVE: CASE EVENT DATE: 201312
